FAERS Safety Report 11088933 (Version 1)
Quarter: 2015Q2

REPORT INFORMATION
  Report Type: Spontaneous
  Country: US (occurrence: US)
  Receive Date: 20150504
  Receipt Date: 20150504
  Transmission Date: 20150821
  Serious: Yes (Other)
  Sender: FDA-Public Use
  Company Number: CHPA2015US005727

PATIENT
  Sex: Male

DRUGS (3)
  1. VOLTAREN [Suspect]
     Active Substance: DICLOFENAC SODIUM
     Indication: SWELLING
  2. VOLTAREN [Suspect]
     Active Substance: DICLOFENAC SODIUM
     Indication: JAW DISORDER
     Dosage: UNK, BID
     Route: 061
  3. VOLTAREN [Suspect]
     Active Substance: DICLOFENAC SODIUM
     Indication: PAIN IN JAW

REACTIONS (11)
  - Peripheral venous disease [Unknown]
  - Drug ineffective for unapproved indication [Unknown]
  - Vein disorder [Unknown]
  - Product use issue [Unknown]
  - Vascular insufficiency [Not Recovered/Not Resolved]
  - Balance disorder [Not Recovered/Not Resolved]
  - Venous occlusion [Unknown]
  - Therapeutic response unexpected [Unknown]
  - Vein discolouration [Unknown]
  - Jugular vein distension [Unknown]
  - Vascular pain [Not Recovered/Not Resolved]

NARRATIVE: CASE EVENT DATE: 20150429
